FAERS Safety Report 8573217-2 (Version None)
Quarter: 2012Q3

REPORT INFORMATION
  Report Type: 
  Country: None (occurrence: None)
  Receive Date: 20120806
  Receipt Date: 20120801
  Transmission Date: 20120928
  Serious: Yes (Other)
  Sender: FDA-Public Use
  Company Number: US-PFIZER INC-2012029718

PATIENT
  Age: 77 Year
  Sex: Female
  Weight: 117.91 kg

DRUGS (2)
  1. LYRICA [Suspect]
     Indication: NEUROPATHY PERIPHERAL
     Dosage: 75 MG, 3X/DAY
     Route: 048
  2. TYLENOL (CAPLET) [Concomitant]
     Dosage: UNK

REACTIONS (2)
  - MACULAR FIBROSIS [None]
  - DEAFNESS [None]
